FAERS Safety Report 13267771 (Version 1)
Quarter: 2017Q1

REPORT INFORMATION
  Report Type: Spontaneous
  Country: US (occurrence: US)
  Receive Date: 20170223
  Receipt Date: 20170223
  Transmission Date: 20170428
  Serious: No
  Sender: FDA-Public Use
  Company Number: None

PATIENT
  Age: 46 Year
  Sex: Male
  Weight: 123.7 kg

DRUGS (3)
  1. OSELTAMIVIR PHOSPHATE CAPSULES U [Suspect]
     Active Substance: OSELTAMIVIR PHOSPHATE
     Indication: INFLUENZA
     Dosage: ?          QUANTITY:10 CAPSULE(S);?
     Route: 048
     Dates: start: 20170221, end: 20170221
  2. IBUPROFEN. [Concomitant]
     Active Substance: IBUPROFEN
  3. BENZONATATE. [Concomitant]
     Active Substance: BENZONATATE

REACTIONS (6)
  - Anxiety [None]
  - Headache [None]
  - Photophobia [None]
  - Abnormal dreams [None]
  - Hyperhidrosis [None]
  - Disorientation [None]

NARRATIVE: CASE EVENT DATE: 20170221
